FAERS Safety Report 8671400 (Version 7)
Quarter: 2014Q4

REPORT INFORMATION
  Report Type: Report from Study
  Country: US (occurrence: US)
  Receive Date: 20120718
  Receipt Date: 20141010
  Transmission Date: 20150529
  Serious: Yes (Other)
  Sender: FDA-Public Use
  Company Number: US-GLAXOSMITHKLINE-A0984637A

PATIENT
  Sex: Female

DRUGS (2)
  1. SALBUTAMOL SULPHATE [Suspect]
     Active Substance: ALBUTEROL SULFATE
     Indication: CHRONIC OBSTRUCTIVE PULMONARY DISEASE
     Route: 065
  2. ANTIDEPRESSANT [Concomitant]
     Active Substance: UNSPECIFIED INGREDIENT

REACTIONS (16)
  - Malaise [Unknown]
  - Musculoskeletal stiffness [Unknown]
  - Depression [Unknown]
  - Haemorrhage [Unknown]
  - Dyspnoea [Unknown]
  - Cough [Unknown]
  - Panic attack [Unknown]
  - Spondylitis [Unknown]
  - Neck pain [Unknown]
  - Pulmonary function test decreased [Unknown]
  - Increased tendency to bruise [Unknown]
  - Nasopharyngitis [Unknown]
  - Headache [Unknown]
  - Dyspnoea exertional [Unknown]
  - Asthma [Unknown]
  - Candida infection [Recovered/Resolved]

NARRATIVE: CASE EVENT DATE: 201310
